FAERS Safety Report 9214773 (Version 2)
Quarter: 2013Q2

REPORT INFORMATION
  Report Type: Report from Study
  Country: DE (occurrence: DE)
  Receive Date: 20130405
  Receipt Date: 20130513
  Transmission Date: 20140414
  Serious: Yes (Hospitalization)
  Sender: FDA-Public Use
  Company Number: DE-ABBOTT-13P-062-1068979-00

PATIENT
  Age: 9 Year
  Sex: Male
  Weight: 33.7 kg

DRUGS (3)
  1. KALETRA [Suspect]
     Indication: HIV INFECTION
     Dosage: 100/25 MG
     Route: 048
     Dates: start: 20080516
  2. ZIAGEN [Concomitant]
     Indication: HIV INFECTION
     Dosage: 300MG MORNING DOSE AND 150MG EVENING DOSE
     Route: 048
     Dates: start: 20080516
  3. RETROVIR [Concomitant]
     Indication: HIV INFECTION
     Route: 048
     Dates: start: 20040113

REACTIONS (2)
  - Peritonsillar abscess [Not Recovered/Not Resolved]
  - Tonsillectomy [Recovered/Resolved]
